FAERS Safety Report 8891088 (Version 1)
Quarter: 2012Q4

REPORT INFORMATION
  Report Type: 
  Country: IT (occurrence: IT)
  Receive Date: 20121107
  Receipt Date: 20121107
  Transmission Date: 20130627
  Serious: Yes (Death, Hospitalization)
  Sender: FDA-Public Use
  Company Number: IT-PFIZER INC-2012273481

PATIENT
  Age: 57 Year
  Sex: Male

DRUGS (2)
  1. CLADRIBINE [Suspect]
     Indication: HAIRY CELL LEUKAEMIA
     Dosage: 0.14 mg/Kg/day (five days administration)
  2. ACYCLOVIR [Concomitant]
     Indication: ANTIVIRAL PROPHYLAXIS
     Dosage: UNK

REACTIONS (4)
  - Meningoencephalitis bacterial [Fatal]
  - Pulmonary oedema [Fatal]
  - Tuberculosis of central nervous system [None]
  - Syncope [None]
